FAERS Safety Report 7816621-X (Version None)
Quarter: 2011Q4

REPORT INFORMATION
  Report Type: 
  Country: None (occurrence: None)
  Receive Date: 20111017
  Receipt Date: 20111012
  Transmission Date: 20120403
  Serious: Yes (Other)
  Sender: FDA-Public Use
  Company Number: SE-PFIZER INC-2011178301

PATIENT
  Age: 55 Year
  Sex: Male

DRUGS (1)
  1. PREDNISOLONE [Suspect]
     Indication: PEMPHIGUS

REACTIONS (7)
  - MUSCLE SPASMS [None]
  - BALANCE DISORDER [None]
  - HEADACHE [None]
  - CATARACT [None]
  - BLOOD CHOLESTEROL INCREASED [None]
  - ASTHENIA [None]
  - DIABETES MELLITUS [None]
